FAERS Safety Report 18421924 (Version 1)
Quarter: 2020Q4

REPORT INFORMATION
  Report Type: Spontaneous
  Country: US (occurrence: US)
  Receive Date: 20201023
  Receipt Date: 20201023
  Transmission Date: 20210114
  Serious: No
  Sender: FDA-Public Use
  Company Number: US-PFIZER INC-2020409408

PATIENT
  Age: 79 Year
  Sex: Female
  Weight: 66.68 kg

DRUGS (1)
  1. PREGABALIN. [Suspect]
     Active Substance: PREGABALIN
     Indication: NEUROPATHY PERIPHERAL
     Dosage: 150 MG, 2X/DAY
     Route: 048
     Dates: start: 2020, end: 2020

REACTIONS (6)
  - Swollen tongue [Recovered/Resolved]
  - Drug ineffective [Unknown]
  - Lip swelling [Recovered/Resolved]
  - Sleep disorder [Unknown]
  - Muscle spasms [Unknown]
  - Musculoskeletal stiffness [Unknown]
